FAERS Safety Report 5576839-6 (Version None)
Quarter: 2007Q4

REPORT INFORMATION
  Report Type: 
  Country: None (occurrence: None)
  Receive Date: 20071228
  Receipt Date: 20071220
  Transmission Date: 20080405
  Serious: Yes (Death)
  Sender: FDA-Public Use
  Company Number: US-JNJFOC-20071006100

PATIENT
  Age: 46 Year
  Sex: Male
  Weight: 58.97 kg

DRUGS (2)
  1. RISPERDAL CONSTA [Suspect]
     Indication: DRUG USE FOR UNKNOWN INDICATION
     Route: 030
  2. OTHER MEDICATION [Concomitant]

REACTIONS (2)
  - MYOCARDIAL INFARCTION [None]
  - PULMONARY EMBOLISM [None]
